FAERS Safety Report 10207032 (Version 1)
Quarter: 2014Q2

REPORT INFORMATION
  Report Type: Spontaneous
  Country: US (occurrence: None)
  Receive Date: 20140529
  Receipt Date: 20140529
  Transmission Date: 20141212
  Serious: Yes (Hospitalization, Other)
  Sender: FDA-Public Use
  Company Number: None

PATIENT
  Age: 34 Year
  Sex: Female
  Weight: 61.24 kg

DRUGS (27)
  1. VIIBRYD [Suspect]
     Indication: DEPRESSION
     Dosage: 2 TBL BY MOUTH
     Dates: start: 20120828, end: 20140328
  2. VIIBRYD [Suspect]
     Indication: MIGRAINE
     Dosage: 2 TBL BY MOUTH
     Dates: start: 20120828, end: 20140328
  3. ESCITALOPRAM [Suspect]
     Indication: DEPRESSION
  4. ESCITALOPRAM [Suspect]
     Indication: MIGRAINE
  5. IMITREX [Concomitant]
  6. LIDO [Concomitant]
  7. PRILOCIN [Concomitant]
  8. IBUPROFEN [Concomitant]
  9. CIPROFLOXACIN [Concomitant]
  10. CICLOBENZAPINE [Concomitant]
  11. MELOXIN [Concomitant]
  12. LEXAPRO [Concomitant]
  13. FLEXERIL [Concomitant]
  14. CLINDAMYCIN [Concomitant]
  15. IBUPROFEN [Concomitant]
  16. VACINACION AFURIA [Concomitant]
  17. XANAX [Concomitant]
  18. VITAMIN D [Concomitant]
  19. MELOXICAM [Concomitant]
  20. CLONAZEPAM [Concomitant]
  21. BACTRIM (SILFAMETH/TRIMETHOPRIM) [Concomitant]
  22. TRAMADOL [Concomitant]
  23. KEFLEX [Concomitant]
  24. SUMATRIPTAN [Concomitant]
  25. ATORVASTATIN [Concomitant]
  26. SUMATRIPTAN [Suspect]
  27. CYCLOBENZAPRINE [Suspect]

REACTIONS (7)
  - Tremor [None]
  - Convulsion [None]
  - Anxiety [None]
  - Vision blurred [None]
  - Amnesia [None]
  - Mental status changes [None]
  - Disturbance in attention [None]
